FAERS Safety Report 5192977-4 (Version None)
Quarter: 2006Q4

REPORT INFORMATION
  Report Type: 
  Country: None (occurrence: None)
  Receive Date: 20061228
  Receipt Date: 20060330
  Transmission Date: 20070319
  Serious: No
  Sender: FDA-Public Use
  Company Number: US-GLAXOSMITHKLINE-A0599754A

PATIENT
  Age: 81 Year
  Sex: Male

DRUGS (2)
  1. FLONASE [Suspect]
     Indication: DRUG USE FOR UNKNOWN INDICATION
     Dosage: 2SPR TWICE PER DAY
     Route: 045
     Dates: start: 20010101
  2. HYTRIN [Concomitant]

REACTIONS (4)
  - AMNESIA [None]
  - CHEST PAIN [None]
  - DRY THROAT [None]
  - EPISTAXIS [None]
